FAERS Safety Report 14247056 (Version 1)
Quarter: 2017Q4

REPORT INFORMATION
  Report Type: Spontaneous
  Country: IN (occurrence: IN)
  Receive Date: 20171204
  Receipt Date: 20171204
  Transmission Date: 20180321
  Serious: Yes (Other)
  Sender: FDA-Public Use
  Company Number: PHHY2017IN176585

PATIENT
  Age: 24 Year
  Sex: Male

DRUGS (1)
  1. TRIAMCINOLONE ACETONIDE. [Suspect]
     Active Substance: TRIAMCINOLONE ACETONIDE
     Indication: URTICARIA
     Dosage: UNK
     Route: 030

REACTIONS (4)
  - Pain [Recovered/Resolved]
  - Skin discolouration [Recovered/Resolved]
  - Embolia cutis medicamentosa [Unknown]
  - Skin ulcer [Recovered/Resolved]
